FAERS Safety Report 4981851-1 (Version None)
Quarter: 2006Q2

REPORT INFORMATION
  Report Type: 
  Country: None (occurrence: None)
  Receive Date: 20060421
  Receipt Date: 20060421
  Transmission Date: 20061013
  Serious: Yes (Hospitalization, Other)
  Sender: FDA-Public Use
  Company Number: None

PATIENT
  Sex: Male
  Weight: 86.4 kg

DRUGS (4)
  1. CYCLOPHOSPHAMIDE [Suspect]
     Indication: ACUTE LYMPHOCYTIC LEUKAEMIA
     Dosage: 2350 MG
     Dates: start: 20060403
  2. DAUNORUBICIN [Suspect]
     Dosage: 471 MG
     Dates: start: 20060405
  3. DEXAMETHASONE [Suspect]
     Dosage: 140 MG
     Dates: start: 20060409
  4. G-CSF (FILGRASTIM, AMGEN) [Suspect]
     Dosage: 6240 MCG
     Dates: start: 20060418

REACTIONS (1)
  - FEBRILE NEUTROPENIA [None]
